FAERS Safety Report 10155442 (Version 1)
Quarter: 2014Q2

REPORT INFORMATION
  Report Type: Spontaneous
  Country: US (occurrence: US)
  Receive Date: 20140506
  Receipt Date: 20140506
  Transmission Date: 20141212
  Serious: Yes (Other)
  Sender: FDA-Public Use
  Company Number: US-ABBVIE-14P-163-1230282-00

PATIENT
  Age: 52 Year
  Sex: Female
  Weight: 85.81 kg

DRUGS (8)
  1. HUMIRA [Suspect]
     Indication: RHEUMATOID ARTHRITIS
  2. HUMIRA [Suspect]
     Dates: start: 20140417
  3. AMITRIPTYLINE [Concomitant]
     Indication: DEPRESSION
  4. VALIUM [Concomitant]
     Indication: MUSCLE SPASMS
  5. GABAPENTIN [Concomitant]
     Indication: NEURALGIA
  6. OMEPRAZOLE [Concomitant]
     Indication: GASTROOESOPHAGEAL REFLUX DISEASE
  7. PROMETHAZINE [Concomitant]
     Indication: NAUSEA
  8. TIZANIDINE [Concomitant]
     Indication: MUSCLE SPASMS

REACTIONS (4)
  - Chondropathy [Not Recovered/Not Resolved]
  - Arthralgia [Not Recovered/Not Resolved]
  - Contusion [Not Recovered/Not Resolved]
  - Contusion [Not Recovered/Not Resolved]
